FAERS Safety Report 23444127 (Version 2)
Quarter: 2024Q1

REPORT INFORMATION
  Report Type: Spontaneous
  Country: FR (occurrence: FR)
  Receive Date: 20240125
  Receipt Date: 20240207
  Transmission Date: 20240410
  Serious: Yes (Other)
  Sender: FDA-Public Use
  Company Number: None

PATIENT
  Age: 41 Year
  Sex: Male
  Weight: 71 kg

DRUGS (5)
  1. LEVOFLOXACIN [Suspect]
     Active Substance: LEVOFLOXACIN
     Indication: Legionella infection
     Dosage: 1 G, QD?FORM OF ADMIN: SOLUTION FOR INFUSION
     Route: 042
     Dates: start: 20231124, end: 20231127
  2. SPIRAMYCIN [Suspect]
     Active Substance: SPIRAMYCIN
     Indication: Legionella infection
     Dosage: 9 10*6.IU, QD?ROUTE: INTRAVENOUS
     Dates: start: 20231123, end: 20231127
  3. SEVELAMER CARBONATE [Suspect]
     Active Substance: SEVELAMER CARBONATE
     Indication: Hyperphosphataemia
     Dosage: 1600 MG, QD?FORM: POWDER FOR ORAL SUSPENSION?ROUTE: ORAL
     Dates: start: 20231125, end: 20231127
  4. METRONIDAZOLE [Suspect]
     Active Substance: METRONIDAZOLE
     Indication: Legionella infection
     Dosage: ROUTE OF ADMIN: INTRAVENOUS?1.5 G, QD ?FORM: SOLUTION FOR INFUSION
     Dates: start: 20231124, end: 20231127
  5. PANTOPRAZOLE SODIUM I.V. [Suspect]
     Active Substance: PANTOPRAZOLE SODIUM
     Indication: Prophylaxis
     Dosage: ROUTE OF ADMIN: INTRAVENOUS?FROM: POWDER FOR SOLUTION FOR INJECTION ?40 MG, QD
     Dates: start: 20231124, end: 20231127

REACTIONS (1)
  - Dermatitis exfoliative generalised [Not Recovered/Not Resolved]

NARRATIVE: CASE EVENT DATE: 20231127
